FAERS Safety Report 6690407-4 (Version None)
Quarter: 2010Q2

REPORT INFORMATION
  Report Type: 
  Country: None (occurrence: None)
  Receive Date: 20100421
  Receipt Date: 20090914
  Transmission Date: 20101027
  Serious: No
  Sender: FDA-Public Use
  Company Number: US-ASTRAZENECA-2009SE08937

PATIENT
  Age: 897 Month
  Sex: Male
  Weight: 81.2 kg

DRUGS (5)
  1. CASODEX [Suspect]
     Route: 048
  2. KAPIDEX [Suspect]
     Indication: GASTROOESOPHAGEAL REFLUX DISEASE
     Route: 048
  3. ACTOS [Concomitant]
     Indication: DIABETES MELLITUS
  4. ZOCOR [Concomitant]
     Indication: LIPID METABOLISM DISORDER
  5. UNIVASC [Concomitant]
     Indication: HYPERTENSION

REACTIONS (4)
  - DIZZINESS [None]
  - DRUG NAME CONFUSION [None]
  - DRUG PRESCRIBING ERROR [None]
  - FATIGUE [None]
